FAERS Safety Report 6578296-X (Version None)
Quarter: 2010Q1

REPORT INFORMATION
  Report Type: 
  Country: None (occurrence: None)
  Receive Date: 20100211
  Receipt Date: 20100202
  Transmission Date: 20100710
  Serious: Yes (Life-Threatening, Hospitalization)
  Sender: FDA-Public Use
  Company Number: B0631707A

PATIENT
  Age: 70 Year
  Sex: Female

DRUGS (1)
  1. ARIXTRA [Suspect]
     Dosage: 2.5MG PER DAY
     Route: 058
     Dates: start: 20091217, end: 20100104

REACTIONS (7)
  - HAEMATOMA [None]
  - HAEMORRHAGE [None]
  - HYPOTHERMIA [None]
  - INTRA-ABDOMINAL HAEMATOMA [None]
  - NIGHT SWEATS [None]
  - OFF LABEL USE [None]
  - SPLENIC RUPTURE [None]
